FAERS Safety Report 22854365 (Version 2)
Quarter: 2023Q4

REPORT INFORMATION
  Report Type: Spontaneous
  Country: ES (occurrence: ES)
  Receive Date: 20230823
  Receipt Date: 20231120
  Transmission Date: 20240110
  Serious: Yes (Other)
  Sender: FDA-Public Use
  Company Number: None

PATIENT
  Age: 44 Year
  Sex: Male
  Weight: 107 kg

DRUGS (1)
  1. FLUOXETINE HYDROCHLORIDE [Suspect]
     Active Substance: FLUOXETINE HYDROCHLORIDE
     Indication: Eating disorder
     Dosage: 20 MILLIGRAM, QD (24 HOUR 1-0-0)
     Route: 048
     Dates: start: 20230701, end: 20230710

REACTIONS (5)
  - Adenoviral conjunctivitis [Recovered/Resolved]
  - Conjunctivitis [Recovered/Resolved]
  - Central serous chorioretinopathy [Not Recovered/Not Resolved]
  - Retinoschisis [Not Recovered/Not Resolved]
  - Vision blurred [Not Recovered/Not Resolved]

NARRATIVE: CASE EVENT DATE: 20230703
